FAERS Safety Report 13303630 (Version 2)
Quarter: 2017Q2

REPORT INFORMATION
  Report Type: Spontaneous
  Country: US (occurrence: US)
  Receive Date: 20170307
  Receipt Date: 20170421
  Transmission Date: 20170830
  Serious: No
  Sender: FDA-Public Use
  Company Number: US-ACTELION-A-US2017-150782

PATIENT
  Age: 60 Year
  Sex: Female
  Weight: 49.89 kg

DRUGS (3)
  1. UPTRAVI [Suspect]
     Active Substance: SELEXIPAG
     Indication: PULMONARY ARTERIAL HYPERTENSION
     Dosage: 200 MCG, BID
     Route: 048
  2. COUMADIN [Concomitant]
     Active Substance: WARFARIN SODIUM
  3. ADEMPAS [Concomitant]
     Active Substance: RIOCIGUAT

REACTIONS (9)
  - Throat irritation [Unknown]
  - Wheezing [Unknown]
  - Swelling [Unknown]
  - Headache [Unknown]
  - Influenza like illness [Unknown]
  - Myalgia [Unknown]
  - Nasal congestion [Unknown]
  - Nasal discomfort [Unknown]
  - Oedema [Unknown]
